FAERS Safety Report 4765289-8 (Version None)
Quarter: 2005Q3

REPORT INFORMATION
  Report Type: 
  Country: None (occurrence: None)
  Receive Date: 20050906
  Receipt Date: 20050823
  Transmission Date: 20060218
  Serious: Yes (Life-Threatening)
  Sender: FDA-Public Use
  Company Number: 2005119332

PATIENT
  Age: 40 Year
  Sex: Male
  Weight: 60 kg

DRUGS (1)
  1. MAGNEX (SULBACTAM, CEFOPERAZONE) [Suspect]
     Indication: BRAIN CONTUSION
     Dosage: 2 GRAM (1 GRAM, 2 IN 1 D, INTRAVENOUS)
     Route: 042
     Dates: start: 20050821, end: 20050822

REACTIONS (2)
  - TRACHEAL HAEMORRHAGE [None]
  - TRACHEOSTOMY MALFUNCTION [None]
